FAERS Safety Report 8041417-6 (Version None)
Quarter: 2012Q1

REPORT INFORMATION
  Report Type: 
  Country: None (occurrence: None)
  Receive Date: 20120112
  Receipt Date: 20120105
  Transmission Date: 20120608
  Serious: Yes (Life-Threatening, Hospitalization, Other)
  Sender: FDA-Public Use
  Company Number: US-BAYER-2011-032782

PATIENT
  Age: 37 Year
  Sex: Female
  Weight: 95.238 kg

DRUGS (8)
  1. FLUTICASONE FUROATE [Concomitant]
     Dosage: 50 ?G, UNK
     Route: 045
     Dates: start: 20080602
  2. DROSPIRENONE AND ETHINYL ESTRADIOL [Suspect]
     Indication: ENDOMETRIOSIS
     Dosage: UNK
     Dates: start: 20070501, end: 20080801
  3. TRIAMTERENE AND HYDROCHLOROTHIAZIDE [Concomitant]
     Indication: FLUID RETENTION
     Dosage: 37.5/25 MG
     Dates: start: 19940101
  4. YAZ [Suspect]
     Dosage: UNK
  5. MOMETASONE FUROATE [Concomitant]
     Dosage: 0.1 %, UNK
     Dates: start: 20080715
  6. YAZ [Suspect]
     Dosage: UNK
     Dates: start: 20070801
  7. YASMIN [Suspect]
     Indication: ENDOMETRIOSIS
     Dosage: UNK
     Dates: start: 20070501, end: 20080801
  8. ALBUTEROL SULFATE [Concomitant]
     Dosage: 90 ?G, UNK
     Dates: start: 20080602

REACTIONS (5)
  - PAIN [None]
  - MENTAL DISORDER [None]
  - DEEP VEIN THROMBOSIS [None]
  - PULMONARY EMBOLISM [None]
  - INJURY [None]
